FAERS Safety Report 9494511 (Version 1)
Quarter: 2013Q3

REPORT INFORMATION
  Report Type: Spontaneous
  Country: US (occurrence: None)
  Receive Date: 20130830
  Receipt Date: 20130830
  Transmission Date: 20140515
  Serious: Yes (Disabling, Other)
  Sender: FDA-Public Use
  Company Number: None

PATIENT
  Age: 84 Year
  Sex: Female
  Weight: 99.79 kg

DRUGS (7)
  1. ANASTROZOLE/ARIMIDEX [Suspect]
     Indication: BREAST CANCER
     Dosage: 1 PILL 1 PER DAY MOUTH
     Route: 048
     Dates: start: 20120201, end: 20121201
  2. FUROSEMIDE [Concomitant]
  3. DIGOXIN [Concomitant]
  4. DILTIAZEM [Concomitant]
  5. LOSARTAN POTASSIUM [Concomitant]
  6. WARFARIN SODIUM [Concomitant]
  7. EQUATE [Concomitant]

REACTIONS (3)
  - Bone pain [None]
  - Cough [None]
  - Walking aid user [None]
